FAERS Safety Report 22024299 (Version 2)
Quarter: 2024Q1

REPORT INFORMATION
  Report Type: Spontaneous
  Country: US (occurrence: None)
  Receive Date: 20230223
  Receipt Date: 20240207
  Transmission Date: 20240409
  Serious: No
  Sender: FDA-Public Use
  Company Number: US-ROCHE-3072314

PATIENT
  Age: 55 Year
  Sex: Female

DRUGS (2)
  1. XOLAIR [Suspect]
     Active Substance: OMALIZUMAB
     Indication: Asthma
     Dosage: FORMULATION : VIAL (SINGLE DOSE VIAL)
     Route: 058
     Dates: start: 202103
  2. XOLAIR [Suspect]
     Active Substance: OMALIZUMAB
     Dosage: FORMULATION: VIAL (SINGLE DOSE VIAL)
     Route: 058
     Dates: start: 202104

REACTIONS (2)
  - Off label use [Unknown]
  - No adverse event [Unknown]
